FAERS Safety Report 7310453-7 (Version None)
Quarter: 2011Q1

REPORT INFORMATION
  Report Type: 
  Country: None (occurrence: None)
  Receive Date: 20110224
  Receipt Date: 20100908
  Transmission Date: 20110831
  Serious: No
  Sender: FDA-Public Use
  Company Number: US-BRISTOL-MYERS SQUIBB COMPANY-15263023

PATIENT
  Age: 78 Year
  Sex: Male
  Weight: 98 kg

DRUGS (1)
  1. METFORMIN HCL [Suspect]
     Indication: TYPE 2 DIABETES MELLITUS
     Dosage: 250MG 30 MINUTES BEFORE BREAKFAST AND 500MG WITH DINNER
     Route: 048

REACTIONS (1)
  - BLOOD GLUCOSE FLUCTUATION [None]
